FAERS Safety Report 20257790 (Version 1)
Quarter: 2021Q4

REPORT INFORMATION
  Report Type: Spontaneous
  Country: DE (occurrence: DE)
  Receive Date: 20211230
  Receipt Date: 20211230
  Transmission Date: 20220303
  Serious: Yes (Hospitalization)
  Sender: FDA-Public Use
  Company Number: DE-NOVARTISPH-NVSC2021DE291139

PATIENT
  Age: 69 Year
  Sex: Male

DRUGS (8)
  1. ASPIRIN [Suspect]
     Active Substance: ASPIRIN
     Indication: Product used for unknown indication
     Dosage: 100 MG, QD (100 MG, 1-0-0-0)
     Route: 048
  2. AMLODIPIN 1 A PHARMA N [Concomitant]
     Indication: Product used for unknown indication
     Dosage: 10 MG, QD (10 MG, 0-0-1-0)
     Route: 048
  3. METFORMIN\SITAGLIPTIN [Concomitant]
     Active Substance: METFORMIN\SITAGLIPTIN
     Indication: Product used for unknown indication
     Dosage: UNK UNK, BID (50|1000 MG, 1-0-1-0)
     Route: 048
  4. SIMVASTATIN-1A PHARMA [Concomitant]
     Indication: Product used for unknown indication
     Dosage: 10 MG, QD (10 MG, 0-0-1-0)
     Route: 048
  5. GLIMEPIRIDE [Concomitant]
     Active Substance: GLIMEPIRIDE
     Indication: Product used for unknown indication
     Dosage: 1 MG, QD (1 MG, 1-0-0-0)
     Route: 048
  6. MOXONIDIN 1 A PHARM [Concomitant]
     Indication: Product used for unknown indication
     Dosage: 0.3 MG, BID (0.3 MG, 1-0-1-0)
     Route: 048
  7. CHOLECALCIFEROL [Concomitant]
     Active Substance: CHOLECALCIFEROL
     Indication: Product used for unknown indication
     Dosage: 20000 IU (20000 IE, NACH SCHMEA)
     Route: 048
  8. CANDESARTAN CILEXETIL [Concomitant]
     Active Substance: CANDESARTAN CILEXETIL
     Indication: Product used for unknown indication
     Dosage: 32 MG, 1-0-0-0
     Route: 048

REACTIONS (4)
  - Dyspnoea [Unknown]
  - Rectal cancer [Unknown]
  - General physical health deterioration [Unknown]
  - Fatigue [Unknown]
